FAERS Safety Report 14418510 (Version 1)
Quarter: 2018Q1

REPORT INFORMATION
  Report Type: Spontaneous
  Country: US (occurrence: US)
  Receive Date: 20180119
  Receipt Date: 20180119
  Transmission Date: 20180509
  Serious: Yes (Other)
  Sender: FDA-Public Use
  Company Number: None

PATIENT
  Age: 21 Year
  Sex: Female
  Weight: 55.8 kg

DRUGS (2)
  1. SINGULAIR [Suspect]
     Active Substance: MONTELUKAST SODIUM
     Indication: HYPERSENSITIVITY
     Dates: start: 20170601, end: 20180119
  2. SINGULAIR [Suspect]
     Active Substance: MONTELUKAST SODIUM
     Indication: ASTHMA
     Dates: start: 20170601, end: 20180119

REACTIONS (6)
  - Anxiety [None]
  - Tic [None]
  - Eating disorder [None]
  - Obsessive-compulsive disorder [None]
  - Condition aggravated [None]
  - Irritability [None]

NARRATIVE: CASE EVENT DATE: 20170720
